FAERS Safety Report 5478109-3 (Version None)
Quarter: 2007Q4

REPORT INFORMATION
  Report Type: 
  Country: None (occurrence: None)
  Receive Date: 20071005
  Receipt Date: 20071003
  Transmission Date: 20080405
  Serious: Yes (Other)
  Sender: FDA-Public Use
  Company Number: CL-JNJFOC-20071000149

PATIENT
  Age: 35 Year
  Sex: Female

DRUGS (3)
  1. TOPAMAX [Suspect]
     Indication: BULIMIA NERVOSA
  2. RIVOTRIL [Concomitant]
  3. VITAMIN B [Concomitant]

REACTIONS (1)
  - HYPOTHERMIA [None]
